FAERS Safety Report 5073406-8 (Version None)
Quarter: 2006Q3

REPORT INFORMATION
  Report Type: 
  Country: None (occurrence: None)
  Receive Date: 20060808
  Receipt Date: 20060726
  Transmission Date: 20061208
  Serious: Yes (Hospitalization)
  Sender: FDA-Public Use
  Company Number: PHBS2006JP11313

PATIENT
  Age: 81 Year
  Sex: Male

DRUGS (3)
  1. TOFRANIL [Suspect]
     Dosage: 20 MG/D
     Route: 048
     Dates: end: 20060627
  2. GASLON [Concomitant]
  3. ATARAX [Concomitant]

REACTIONS (3)
  - BLOOD ALKALINE PHOSPHATASE INCREASED [None]
  - GAMMA-GLUTAMYLTRANSFERASE INCREASED [None]
  - LIVER DISORDER [None]
